FAERS Safety Report 18210386 (Version 1)
Quarter: 2020Q3

REPORT INFORMATION
  Report Type: Spontaneous
  Country: NL (occurrence: NL)
  Receive Date: 20200829
  Receipt Date: 20200829
  Transmission Date: 20201103
  Serious: Yes (Other)
  Sender: FDA-Public Use
  Company Number: NL-ACCORD-171350

PATIENT
  Age: 11 Year

DRUGS (3)
  1. FLUCLOXACILLIN [Interacting]
     Active Substance: FLUCLOXACILLIN
     Indication: PYELONEPHRITIS
     Dosage: UNK
     Route: 065
  2. EVEROLIMUS. [Interacting]
     Active Substance: EVEROLIMUS
     Indication: PYELONEPHRITIS
     Dosage: UNK
     Route: 065
  3. TACROLIMUS. [Suspect]
     Active Substance: TACROLIMUS
     Indication: PYELONEPHRITIS
     Dosage: UNK
     Route: 065

REACTIONS (3)
  - Immunosuppressant drug level decreased [Recovered/Resolved]
  - Off label use [Unknown]
  - Drug interaction [Unknown]
